FAERS Safety Report 17314995 (Version 1)
Quarter: 2020Q1

REPORT INFORMATION
  Report Type: Report from Study
  Country: None (occurrence: US)
  Receive Date: 20200124
  Receipt Date: 20200124
  Transmission Date: 20200409
  Serious: Yes (Hospitalization, Other)
  Sender: FDA-Public Use
  Company Number: US-ABBVIE-20K-163-3243345-00

PATIENT
  Age: 70 Year
  Sex: Male
  Weight: 102.15 kg

DRUGS (1)
  1. CREON [Suspect]
     Active Substance: PANCRELIPASE AMYLASE\PANCRELIPASE LIPASE\PANCRELIPASE PROTEASE
     Indication: DYSPEPSIA
     Dosage: FOUR CAPSULES PER DAY WITH MEALS AND IN BETWEEN SNACKS.
     Route: 048
     Dates: start: 2019

REACTIONS (7)
  - Gallbladder oedema [Recovering/Resolving]
  - Cholecystitis infective [Recovering/Resolving]
  - Dyspnoea [Recovered/Resolved]
  - Gastrointestinal disorder [Not Recovered/Not Resolved]
  - Chest pain [Recovered/Resolved]
  - Abnormal faeces [Not Recovered/Not Resolved]
  - Biliary colic [Recovered/Resolved]

NARRATIVE: CASE EVENT DATE: 20200109
